FAERS Safety Report 18050340 (Version 1)
Quarter: 2020Q3

REPORT INFORMATION
  Report Type: Report from Study
  Country: EG (occurrence: EG)
  Receive Date: 20200721
  Receipt Date: 20200721
  Transmission Date: 20201103
  Serious: Yes (Death)
  Sender: FDA-Public Use
  Company Number: NVSC2020EG204575

PATIENT
  Age: 57 Year
  Sex: Male

DRUGS (1)
  1. ENTRESTO [Suspect]
     Active Substance: SACUBITRIL\VALSARTAN
     Indication: CARDIAC FAILURE
     Dosage: 100 MG, BID(START DATE THE REPORTER DOSE NOT REMEMBER)
     Route: 065

REACTIONS (3)
  - Lung disorder [Unknown]
  - Limb discomfort [Unknown]
  - Cardiac failure [Fatal]

NARRATIVE: CASE EVENT DATE: 20190310
